FAERS Safety Report 13091780 (Version 2)
Quarter: 2021Q4

REPORT INFORMATION
  Report Type: Other
  Country: CA (occurrence: CA)
  Receive Date: 20170106
  Receipt Date: 20211115
  Transmission Date: 20220304
  Serious: Yes (Death, Life-Threatening, Hospitalization, Other)
  Sender: FDA-Public Use
  Company Number: CA-APOTEX-2016AP016243

PATIENT
  Sex: Female

DRUGS (28)
  1. AMPICILLIN [Suspect]
     Active Substance: AMPICILLIN
     Indication: Foetal exposure timing unspecified
     Dosage: UNK
     Route: 064
  2. AMPICILLIN [Suspect]
     Active Substance: AMPICILLIN
     Indication: Evidence based treatment
  3. AMPICILLIN [Suspect]
     Active Substance: AMPICILLIN
     Indication: Antibiotic therapy
  4. LEVOFLOXACIN [Suspect]
     Active Substance: LEVOFLOXACIN
     Indication: Evidence based treatment
     Dosage: 1 MILLIGRAM/KILOGRAM
     Route: 048
  5. LEVOFLOXACIN [Suspect]
     Active Substance: LEVOFLOXACIN
     Indication: Stenotrophomonas infection
     Dosage: 10 MILLIGRAM/KILOGRAM
     Route: 048
  6. SULFAMETHOXAZOLE\TRIMETHOPRIM [Suspect]
     Active Substance: SULFAMETHOXAZOLE\TRIMETHOPRIM
     Indication: Stenotrophomonas infection
     Dosage: 1 MILLIGRAM/KILOGRAM, Q.12H
     Route: 065
  7. SULFAMETHOXAZOLE\TRIMETHOPRIM [Suspect]
     Active Substance: SULFAMETHOXAZOLE\TRIMETHOPRIM
     Indication: Foetal exposure timing unspecified
     Dosage: 3 UNK
     Route: 065
  8. SULFAMETHOXAZOLE\TRIMETHOPRIM [Suspect]
     Active Substance: SULFAMETHOXAZOLE\TRIMETHOPRIM
     Dosage: 2.5 MILLIGRAM/KILOGRAM, Q.6H
     Route: 048
  9. SULFAMETHOXAZOLE\TRIMETHOPRIM [Suspect]
     Active Substance: SULFAMETHOXAZOLE\TRIMETHOPRIM
     Dosage: 2.0 MILLIGRAM/KILOGRAM, Q.6H
     Route: 048
  10. SULFAMETHOXAZOLE\TRIMETHOPRIM [Suspect]
     Active Substance: SULFAMETHOXAZOLE\TRIMETHOPRIM
     Dosage: 2.0 MILLIGRAM/KILOGRAM, Q.6H
     Route: 048
  11. ERYTHROMYCIN [Suspect]
     Active Substance: ERYTHROMYCIN
     Indication: Foetal exposure timing unspecified
     Dosage: UNK
     Route: 064
  12. AMOXICILLIN [Suspect]
     Active Substance: AMOXICILLIN
     Indication: Product used for unknown indication
     Dosage: UNK
     Route: 064
  13. BETAMETHASONE [Suspect]
     Active Substance: BETAMETHASONE
     Indication: Foetal exposure timing unspecified
     Dosage: UNK
     Route: 064
  14. CEFOTAXIME [Suspect]
     Active Substance: CEFOTAXIME SODIUM
     Indication: Foetal exposure timing unspecified
     Dosage: 50 MG/KG, Q.12H
     Route: 065
  15. CEFOTAXIME [Suspect]
     Active Substance: CEFOTAXIME SODIUM
     Indication: Evidence based treatment
     Dosage: 50 MG/KG, Q.6H
     Route: 065
  16. CEFOTAXIME [Suspect]
     Active Substance: CEFOTAXIME SODIUM
     Indication: Antibiotic therapy
     Dosage: UNK
     Route: 064
  17. CEFOTAXIME [Suspect]
     Active Substance: CEFOTAXIME SODIUM
     Indication: Renal failure
     Dosage: 50 MILLIGRAM/KILOGRAM, BID
     Route: 042
  18. GENTAMICIN [Suspect]
     Active Substance: GENTAMICIN
     Indication: Foetal exposure timing unspecified
     Dosage: 5 MG/KG, 1 EVERY 48 HOURS
     Route: 042
  19. GENTAMICIN [Suspect]
     Active Substance: GENTAMICIN
     Indication: Evidence based treatment
  20. GENTAMICIN [Suspect]
     Active Substance: GENTAMICIN
     Indication: Antibiotic therapy
  21. MEROPENEM [Suspect]
     Active Substance: MEROPENEM
     Indication: Respiratory tract infection
     Dosage: 20 MG/KG, Q.12H
     Route: 065
  22. MEROPENEM [Suspect]
     Active Substance: MEROPENEM
     Indication: Foetal exposure timing unspecified
  23. VANCOMYCIN [Suspect]
     Active Substance: VANCOMYCIN
     Indication: Foetal exposure timing unspecified
     Dosage: 15 MG/KG, 1 EVERY 24 HOURS
     Route: 065
  24. VANCOMYCIN [Suspect]
     Active Substance: VANCOMYCIN
     Indication: Antibiotic therapy
     Dosage: 15 MG, QD
     Route: 065
  25. VANCOMYCIN [Suspect]
     Active Substance: VANCOMYCIN
     Indication: Evidence based treatment
  26. AMPICILLIN [Suspect]
     Active Substance: AMPICILLIN
     Indication: Foetal exposure timing unspecified
     Dosage: 50 MILLIGRAM/KILOGRAM, Q.12H
     Route: 042
  27. AMPICILLIN [Suspect]
     Active Substance: AMPICILLIN
     Indication: Evidence based treatment
  28. AMPICILLIN [Suspect]
     Active Substance: AMPICILLIN
     Indication: Antibiotic therapy

REACTIONS (17)
  - Stenotrophomonas infection [Fatal]
  - Hypotonia neonatal [Fatal]
  - Premature baby [Fatal]
  - Lethargy [Fatal]
  - Umbilical erythema [Fatal]
  - Respiratory disorder neonatal [Fatal]
  - Pneumonia bacterial [Fatal]
  - Maternal exposure during pregnancy [Fatal]
  - Renal impairment neonatal [Fatal]
  - Death neonatal [Fatal]
  - Exposure during pregnancy [Fatal]
  - Hypotonia [Fatal]
  - Pneumonia [Fatal]
  - Renal failure [Fatal]
  - Respiratory disorder [Fatal]
  - Sepsis [Fatal]
  - Foetal exposure during pregnancy [Fatal]
